FAERS Safety Report 9481605 (Version 1)
Quarter: 2013Q3

REPORT INFORMATION
  Report Type: Spontaneous
  Country: US (occurrence: US)
  Receive Date: 20130828
  Receipt Date: 20130828
  Transmission Date: 20140515
  Serious: Yes (Other)
  Sender: FDA-Public Use
  Company Number: US-AMGEN-KDL177303

PATIENT
  Age: 52 Year
  Sex: Female

DRUGS (2)
  1. ENBREL [Suspect]
     Indication: RHEUMATOID ARTHRITIS
     Dosage: 50 MG, QWK
     Route: 058
     Dates: start: 1998
  2. METHOTREXATE [Concomitant]
     Dosage: 4 MG, QD
     Route: 048
     Dates: start: 1998

REACTIONS (2)
  - Breast cancer [Recovered/Resolved]
  - Injection site reaction [Unknown]
